FAERS Safety Report 8929428 (Version 1)
Quarter: 2012Q4

REPORT INFORMATION
  Report Type: Report from Study
  Country: US (occurrence: US)
  Receive Date: 20121127
  Receipt Date: 20121127
  Transmission Date: 20130627
  Serious: Yes (Hospitalization)
  Sender: FDA-Public Use
  Company Number: US-009507513-1211USA009058

PATIENT
  Age: 52 Year
  Sex: Female
  Weight: 74 kg

DRUGS (15)
  1. TEMOZOLOMIDE [Suspect]
     Indication: GLIOBLASTOMA
     Dosage: 75 mg/m2, qd
     Route: 048
     Dates: start: 20091103, end: 20091209
  2. BEVACIZUMAB [Suspect]
     Indication: GLIOBLASTOMA
     Dosage: 10 mg/kg 1 in 2 weeks
     Route: 042
     Dates: start: 20091113
  3. BEVACIZUMAB [Suspect]
     Dosage: 10 mg/kg 1 in 2 weeks
     Route: 042
     Dates: start: 20091124, end: 20091208
  4. ERLOTINIB HYDROCHLORIDE [Suspect]
     Indication: GLIOBLASTOMA
     Dosage: 150 mg, qd
     Route: 048
     Dates: start: 20091103
  5. ERLOTINIB HYDROCHLORIDE [Suspect]
     Dosage: 100 mg, qd
     Route: 048
     Dates: start: 20091116, end: 20091207
  6. KEPRA [Concomitant]
     Dosage: UNK
     Dates: start: 20091015
  7. CELEXA [Concomitant]
     Dosage: UNK
     Dates: start: 20091015
  8. PRILOSEC [Concomitant]
     Dosage: UNK
     Dates: start: 20091110
  9. BACTRIM [Concomitant]
     Dosage: UNK
     Dates: start: 20091113
  10. SENOKOT (SENNA) [Concomitant]
     Dosage: UNK
     Dates: start: 20091110
  11. BENADRYL [Concomitant]
     Dosage: UNK
     Dates: start: 20091102
  12. AMBIEN [Concomitant]
     Dosage: UNK
     Dates: start: 20091118
  13. HYDROCORTISONE [Concomitant]
     Dosage: UNK
     Dates: start: 20091115
  14. ZOFRAN [Concomitant]
     Dosage: UNK
     Dates: start: 20091103
  15. VICODIN [Concomitant]
     Dosage: UNK
     Dates: start: 20091210

REACTIONS (1)
  - Oesophageal infection [Not Recovered/Not Resolved]
